FAERS Safety Report 8488731-8 (Version None)
Quarter: 2012Q3

REPORT INFORMATION
  Report Type: 
  Country: None (occurrence: None)
  Receive Date: 20120705
  Receipt Date: 20120625
  Transmission Date: 20120928
  Serious: Yes (Hospitalization)
  Sender: FDA-Public Use
  Company Number: JP-VERTEX PHARMACEUTICALS INC.-AE-2012-009539

PATIENT
  Age: 64 Year
  Sex: Male

DRUGS (4)
  1. RIBAVIRIN [Concomitant]
     Route: 048
     Dates: start: 20120618
  2. PEG-INTRON [Concomitant]
     Route: 058
     Dates: start: 20120618
  3. TELAVIC (TELAPREVIR) [Suspect]
     Route: 048
     Dates: start: 20120618, end: 20120621
  4. TELAVIC (TELAPREVIR) [Suspect]
     Route: 048
     Dates: start: 20120625

REACTIONS (1)
  - RASH [None]
